FAERS Safety Report 13387102 (Version 2)
Quarter: 2017Q2

REPORT INFORMATION
  Report Type: Report from Study
  Country: CH (occurrence: CH)
  Receive Date: 20170330
  Receipt Date: 20170411
  Transmission Date: 20170830
  Serious: Yes (Death, Other)
  Sender: FDA-Public Use
  Company Number: PHHY2015CH111258

PATIENT
  Age: 48 Year
  Sex: Male

DRUGS (1)
  1. LDK378 [Suspect]
     Active Substance: CERITINIB
     Indication: NON-SMALL CELL LUNG CANCER
     Dosage: 750 MG, QD
     Route: 048
     Dates: start: 20150421

REACTIONS (12)
  - Death [Fatal]
  - Metastases to central nervous system [Unknown]
  - Nausea [Recovered/Resolved with Sequelae]
  - Metastases to meninges [Unknown]
  - Malignant neoplasm progression [Unknown]
  - Vomiting [Unknown]
  - Gait disturbance [Unknown]
  - Non-small cell lung cancer [Unknown]
  - Drug intolerance [Unknown]
  - Therapy partial responder [Unknown]
  - Asthenia [Unknown]
  - Visual impairment [Unknown]

NARRATIVE: CASE EVENT DATE: 20150630
